FAERS Safety Report 6103251-3 (Version None)
Quarter: 2009Q1

REPORT INFORMATION
  Report Type: 
  Country: None (occurrence: None)
  Receive Date: 20090305
  Receipt Date: 20081227
  Transmission Date: 20090719
  Serious: Yes (Death, Other)
  Sender: FDA-Public Use
  Company Number: US-PFIZER INC-2008160317

PATIENT
  Sex: Female
  Weight: 45.351 kg

DRUGS (1)
  1. CHANTIX [Suspect]
     Indication: SMOKING CESSATION THERAPY
     Dosage: UNK
     Route: 048
     Dates: start: 20071101, end: 20080401

REACTIONS (3)
  - DEATH [None]
  - LUNG NEOPLASM MALIGNANT [None]
  - PNEUMONIA [None]
